FAERS Safety Report 24555629 (Version 1)
Quarter: 2024Q4

REPORT INFORMATION
  Report Type: Spontaneous
  Country: CA (occurrence: CA)
  Receive Date: 20241028
  Receipt Date: 20241028
  Transmission Date: 20250115
  Serious: Yes (Other)
  Sender: ROCHE
  Company Number: CA-002147023-NVSC2024CA205583

PATIENT
  Age: 72 Year
  Sex: Male
  Weight: 81 kg

DRUGS (3)
  1. OMALIZUMAB [Suspect]
     Active Substance: OMALIZUMAB
     Indication: Asthma
     Dosage: 300 MG, Q4W
     Route: 050
  2. OMALIZUMAB [Suspect]
     Active Substance: OMALIZUMAB
     Dosage: 300 MG, Q4W
     Route: 050
  3. OMALIZUMAB [Suspect]
     Active Substance: OMALIZUMAB
     Dosage: 300 MG, Q4W
     Route: 058

REACTIONS (7)
  - Atrial fibrillation [Unknown]
  - FEV1/FVC ratio decreased [Unknown]
  - Forced expiratory flow decreased [Unknown]
  - Forced expiratory volume abnormal [Unknown]
  - Forced vital capacity abnormal [Unknown]
  - Vital capacity abnormal [Unknown]
  - Weight decreased [Unknown]
